FAERS Safety Report 4917211-9 (Version None)
Quarter: 2006Q1

REPORT INFORMATION
  Report Type: 
  Country: None (occurrence: None)
  Receive Date: 20060215
  Receipt Date: 20060202
  Transmission Date: 20060701
  Serious: Yes (Hospitalization, Other)
  Sender: FDA-Public Use
  Company Number: 2005164873

PATIENT
  Sex: Female
  Weight: 88.4514 kg

DRUGS (9)
  1. CELEBREX [Suspect]
     Indication: OSTEOARTHRITIS
     Dosage: 200 MG (200 MG, 1 IN 1 D)
     Route: 048
  2. CELEBREX [Suspect]
     Indication: PSORIATIC ARTHROPATHY
     Dosage: 200 MG (200 MG, 1 IN 1 D)
     Route: 048
  3. PREVACID [Concomitant]
  4. CYMBALTA [Concomitant]
  5. ALLEGRA [Concomitant]
  6. SYNTHROID [Concomitant]
  7. MULTIVITAMINS (MULTIVITAMINIS) [Concomitant]
  8. SYNVISC (HYALURONATE SODIUM) [Concomitant]
  9. ACETAMINOPHEN [Concomitant]

REACTIONS (9)
  - BLOOD CHOLESTEROL DECREASED [None]
  - DEHYDRATION [None]
  - DYSPEPSIA [None]
  - EMPHYSEMA [None]
  - FLATULENCE [None]
  - HEPATITIS INFECTIOUS [None]
  - OEDEMA PERIPHERAL [None]
  - POSTOPERATIVE INFECTION [None]
  - PYREXIA [None]
